FAERS Safety Report 9979775 (Version 1)
Quarter: 2014Q1

REPORT INFORMATION
  Report Type: Report from Study
  Country: US (occurrence: US)
  Receive Date: 20140306
  Receipt Date: 20140306
  Transmission Date: 20141002
  Serious: No
  Sender: FDA-Public Use
  Company Number: US-ABBVIE-13P-163-1170476-00

PATIENT
  Age: 53 Year
  Sex: Male
  Weight: 72.64 kg

DRUGS (4)
  1. HUMIRA [Suspect]
     Indication: PSORIASIS
     Dosage: ONCE
     Dates: start: 20131019, end: 20131019
  2. HUMIRA [Suspect]
     Dosage: ONCE
     Dates: start: 20131026, end: 20131026
  3. HUMIRA [Suspect]
     Dates: start: 20131109
  4. TOPICAL STEROIDS [Concomitant]
     Indication: PSORIASIS

REACTIONS (1)
  - Abdominal distension [Not Recovered/Not Resolved]
